FAERS Safety Report 10622544 (Version 1)
Quarter: 2014Q4

REPORT INFORMATION
  Report Type: Report from Study
  Country: BR (occurrence: BR)
  Receive Date: 20141203
  Receipt Date: 20141203
  Transmission Date: 20150529
  Serious: Yes (Hospitalization)
  Sender: FDA-Public Use
  Company Number: BR-ABBVIE-14P-020-1314959-00

PATIENT
  Sex: Male
  Weight: 80 kg

DRUGS (4)
  1. FRONTAL [Concomitant]
     Active Substance: ALPRAZOLAM
     Indication: BIPOLAR DISORDER
     Route: 048
     Dates: start: 2014
  2. FRONTAL [Concomitant]
     Active Substance: ALPRAZOLAM
     Indication: ANXIETY
     Route: 048
  3. DEPAKOTE ER [Suspect]
     Active Substance: DIVALPROEX SODIUM
     Indication: ANXIETY
     Dosage: 1000 MG; IN THE MORNING AND AT NIGHT
     Route: 048
     Dates: start: 201305
  4. DEPAKOTE ER [Suspect]
     Active Substance: DIVALPROEX SODIUM
     Indication: BIPOLAR DISORDER
     Dosage: 500 MG; AT NIGHT
     Route: 048
     Dates: start: 2008

REACTIONS (2)
  - Treatment noncompliance [Recovered/Resolved]
  - Rehabilitation therapy [Recovering/Resolving]
